FAERS Safety Report 7051046-9 (Version None)
Quarter: 2010Q4

REPORT INFORMATION
  Report Type: 
  Country: None (occurrence: None)
  Receive Date: 20101019
  Receipt Date: 20101001
  Transmission Date: 20110411
  Serious: Yes (Other)
  Sender: FDA-Public Use
  Company Number: US-BAYER-201022774NA

PATIENT
  Age: 26 Year
  Sex: Female
  Weight: 118 kg

DRUGS (8)
  1. YASMIN [Suspect]
     Indication: ORAL CONTRACEPTION
     Route: 048
     Dates: start: 20090801, end: 20091001
  2. YASMIN [Suspect]
     Route: 048
     Dates: start: 20060901, end: 20080801
  3. YAZ [Suspect]
     Indication: ORAL CONTRACEPTION
     Route: 048
     Dates: start: 20070901, end: 20070901
  4. PRILOSEC [Concomitant]
     Route: 048
  5. TERAZOSIN HCL [Concomitant]
     Dates: start: 20071001, end: 20091001
  6. INDOMETHACIN [Concomitant]
     Dosage: UNIT DOSE: 25 MG
     Route: 048
     Dates: start: 20071101, end: 20090701
  7. CATAPRES [Concomitant]
     Dates: start: 20071001, end: 20090701
  8. PLAQUENIL [Concomitant]
     Indication: RHEUMATOID ARTHRITIS
     Route: 048

REACTIONS (3)
  - ABDOMINAL PAIN [None]
  - CHOLECYSTITIS ACUTE [None]
  - CHOLELITHIASIS [None]
